FAERS Safety Report 6814987-0 (Version None)
Quarter: 2010Q3

REPORT INFORMATION
  Report Type: 
  Country: None (occurrence: None)
  Receive Date: 20100702
  Receipt Date: 20080430
  Transmission Date: 20110219
  Serious: Yes (Hospitalization)
  Sender: FDA-Public Use
  Company Number: CA-ROCHE-712263

PATIENT
  Sex: Male
  Weight: 92 kg

DRUGS (12)
  1. CAPECITABINE [Suspect]
     Dosage: FREQUENCY: 14 DAYS OF 21 DAYS
     Route: 048
     Dates: start: 20061221
  2. CAPECITABINE [Suspect]
     Dosage: FREQUENCY: 14 DAYS OF 21 DAYS
     Route: 048
     Dates: start: 20070222
  3. OXALIPLATIN [Suspect]
     Route: 042
     Dates: start: 20061221
  4. OXALIPLATIN [Suspect]
     Route: 042
     Dates: start: 20070222
  5. IRINOTECAN HCL [Suspect]
     Route: 042
     Dates: start: 20061221
  6. IRINOTECAN HCL [Suspect]
     Route: 042
     Dates: start: 20070222
  7. ZOFRAN [Concomitant]
     Dates: start: 20061221
  8. ZANTAC [Concomitant]
     Dosage: TOTAL DAILY DOSE: PRN
     Dates: start: 20070201
  9. IMODIUM [Concomitant]
     Dosage: TOTAL DAILY DOSE: PRN
     Dates: start: 20070127
  10. TYLENOL E.S. [Concomitant]
     Dosage: TOTAL DAILY DOSE: PRN
     Dates: start: 20070101
  11. ATIVAN [Concomitant]
     Dosage: TOTAL DAILY DOSE: PRN
     Dates: start: 20070101
  12. BENADRYL [Concomitant]
     Dates: start: 20070201, end: 20070201

REACTIONS (1)
  - FEBRILE NEUTROPENIA [None]
